FAERS Safety Report 20369484 (Version 5)
Quarter: 2022Q2

REPORT INFORMATION
  Report Type: Report from Study
  Country: US (occurrence: US)
  Receive Date: 20220124
  Receipt Date: 20220420
  Transmission Date: 20220721
  Serious: No
  Sender: FDA-Public Use
  Company Number: US-NOVARTISTESTPH-NVSC2022US011371

PATIENT
  Sex: Female

DRUGS (1)
  1. MAYZENT [Suspect]
     Active Substance: SIPONIMOD
     Indication: Product used for unknown indication
     Route: 048
     Dates: start: 20220117

REACTIONS (4)
  - Nervousness [Unknown]
  - Gastroenteritis viral [Unknown]
  - Hypertension [Unknown]
  - Product storage error [Unknown]
